FAERS Safety Report 5078048-6 (Version None)
Quarter: 2006Q3

REPORT INFORMATION
  Report Type: 
  Country: None (occurrence: None)
  Receive Date: 20060720
  Receipt Date: 20060113
  Transmission Date: 20061208
  Serious: Yes (Other)
  Sender: FDA-Public Use
  Company Number: 2005133612

PATIENT
  Age: 55 Year
  Sex: Female
  Weight: 54.4316 kg

DRUGS (11)
  1. CELEBREX [Suspect]
     Indication: ANTIINFLAMMATORY THERAPY
     Dosage: 400 MG (200 MG, 2 IN 1 D), ORAL
     Route: 048
  2. CELEBREX [Suspect]
     Indication: PAIN
     Dosage: 400 MG (200 MG, 2 IN 1 D), ORAL
     Route: 048
  3. VYTORIN [Suspect]
     Indication: HYPERLIPIDAEMIA
     Dosage: ORAL
     Route: 048
     Dates: end: 20050101
  4. ACIPHEX [Concomitant]
  5. STRATTERA [Concomitant]
  6. ACTONEL [Concomitant]
  7. FLEXERIL [Concomitant]
  8. ULTRAM [Concomitant]
  9. ALL OTHER THERAPEUTIC PRODUCTS [Concomitant]
  10. DYAZIDE [Concomitant]
  11. MECLIZINE [Concomitant]

REACTIONS (3)
  - BLOOD CHOLESTEROL INCREASED [None]
  - CHEST PAIN [None]
  - GANGRENE [None]
